FAERS Safety Report 5757939-4 (Version None)
Quarter: 2008Q2

REPORT INFORMATION
  Report Type: 
  Country: None (occurrence: None)
  Receive Date: 20080602
  Receipt Date: 20080602
  Transmission Date: 20081010
  Serious: Yes (Other)
  Sender: FDA-Public Use
  Company Number: None

PATIENT
  Sex: Female
  Weight: 63.5036 kg

DRUGS (2)
  1. CHANTIX [Suspect]
     Indication: SMOKING CESSATION THERAPY
     Dosage: 1 TABLET 2 TIMES DAILY PO
     Route: 048
     Dates: start: 20071001, end: 20071128
  2. CHANTIX [Suspect]
     Indication: SMOKING CESSATION THERAPY
     Dosage: 1 TABLET 2 TIMES DAILY PO
     Route: 048
     Dates: start: 20080501, end: 20080531

REACTIONS (10)
  - ABNORMAL DREAMS [None]
  - HEADACHE [None]
  - INFLUENZA [None]
  - IRRITABILITY [None]
  - LOSS OF EMPLOYMENT [None]
  - MAJOR DEPRESSION [None]
  - NAUSEA [None]
  - NIGHTMARE [None]
  - SOCIAL PROBLEM [None]
  - SUICIDAL IDEATION [None]
